FAERS Safety Report 8363882-7 (Version None)
Quarter: 2012Q2

REPORT INFORMATION
  Report Type: 
  Country: None (occurrence: None)
  Receive Date: 20120516
  Receipt Date: 20120507
  Transmission Date: 20120825
  Serious: Yes (Hospitalization)
  Sender: FDA-Public Use
  Company Number: JP-GILEAD-2012-0054989

PATIENT
  Age: 52 Year
  Sex: Female

DRUGS (3)
  1. BERAPROST [Concomitant]
     Indication: PULMONARY HYPERTENSION
     Dosage: 360MCG PER DAY
     Route: 048
     Dates: start: 20100731
  2. ADCIRCA [Concomitant]
     Indication: PULMONARY HYPERTENSION
     Dosage: 20MG PER DAY
     Route: 048
     Dates: start: 20110210
  3. AMBRISENTAN [Suspect]
     Indication: PRODUCT USED FOR UNKNOWN INDICATION
     Dosage: 5MG PER DAY
     Route: 048
     Dates: start: 20120126

REACTIONS (1)
  - PANCYTOPENIA [None]
